FAERS Safety Report 7805355-3 (Version None)
Quarter: 2011Q4

REPORT INFORMATION
  Report Type: 
  Country: None (occurrence: None)
  Receive Date: 20111010
  Receipt Date: 20110926
  Transmission Date: 20120403
  Serious: Yes (Other)
  Sender: FDA-Public Use
  Company Number: US-NOVOPROD-331351

PATIENT

DRUGS (9)
  1. VICTOZA [Suspect]
     Indication: TYPE 2 DIABETES MELLITUS
     Dosage: 1.2 MG, QD
     Dates: start: 20100419, end: 20110630
  2. GLIPIZIDE [Concomitant]
     Indication: DIABETES MELLITUS
     Dosage: UNK
     Route: 065
  3. METFORMIN HYDROCHLORIDE [Concomitant]
     Indication: DIABETES MELLITUS
     Dosage: UNK
     Route: 065
  4. LANTUS [Concomitant]
     Indication: DIABETES MELLITUS
     Dosage: UNK
     Route: 058
  5. QUINAPRIL [Concomitant]
     Indication: HYPERTENSION
     Dosage: UNK
     Route: 065
  6. HYDROCHLOROTHIAZIDE [Concomitant]
     Indication: HYPERTENSION
     Dosage: UNK
     Route: 065
  7. ASPIRIN [Concomitant]
     Indication: CORONARY ARTERY DISEASE
     Dosage: UNK
     Route: 065
  8. ZOCOR [Concomitant]
     Indication: LIPIDS INCREASED
     Dosage: UNK
     Route: 065
  9. ZOCOR [Concomitant]
     Indication: CORONARY ARTERY DISEASE

REACTIONS (3)
  - LIPASE INCREASED [None]
  - HEPATIC ENZYME INCREASED [None]
  - NAUSEA [None]
